FAERS Safety Report 18294644 (Version 1)
Quarter: 2020Q3

REPORT INFORMATION
  Report Type: Spontaneous
  Country: NO (occurrence: NO)
  Receive Date: 20200922
  Receipt Date: 20200922
  Transmission Date: 20201103
  Serious: Yes (Life-Threatening, Hospitalization, Disabling, Other)
  Sender: FDA-Public Use
  Company Number: NO-BAYER-2020-194175

PATIENT
  Age: 26 Year
  Sex: Female
  Weight: 65 kg

DRUGS (1)
  1. JAYDESS [Suspect]
     Active Substance: LEVONORGESTREL
     Indication: CONTRACEPTION
     Dosage: 14 ?G PER DAY CONTINUOUSLY
     Route: 015
     Dates: start: 20180709, end: 20200101

REACTIONS (2)
  - Salpingectomy [Recovered/Resolved with Sequelae]
  - Ectopic pregnancy [Recovered/Resolved with Sequelae]

NARRATIVE: CASE EVENT DATE: 20200105
